FAERS Safety Report 10049015 (Version 1)
Quarter: 2014Q1

REPORT INFORMATION
  Report Type: Spontaneous
  Country: US (occurrence: US)
  Receive Date: 20140331
  Receipt Date: 20140331
  Transmission Date: 20141002
  Serious: No
  Sender: FDA-Public Use
  Company Number: US-GILEAD-2014-0098344

PATIENT
  Sex: Male

DRUGS (3)
  1. LETAIRIS [Suspect]
     Indication: PRODUCT USED FOR UNKNOWN INDICATION
     Dosage: 10 MG, QD
     Route: 065
     Dates: start: 20130617
  2. VELETRI [Concomitant]
     Route: 065
  3. ADCIRCA [Concomitant]
     Route: 065

REACTIONS (2)
  - Device dislocation [Unknown]
  - Fungal infection [Unknown]
